FAERS Safety Report 26097105 (Version 2)
Quarter: 2025Q4

REPORT INFORMATION
  Report Type: Spontaneous
  Country: EU (occurrence: EU)
  Receive Date: 20251127
  Receipt Date: 20251218
  Transmission Date: 20260118
  Serious: Yes (Other)
  Sender: BRISTOL-MYERS SQUIBB COMPANY
  Company Number: EU-002147023-NVSC2025PL175806

PATIENT
  Age: 27 Year
  Sex: Male

DRUGS (5)
  1. DASATINIB [Suspect]
     Active Substance: DASATINIB
     Indication: Chronic myeloid leukaemia
     Dosage: UNK
     Dates: start: 2018, end: 2024
  2. DASATINIB [Suspect]
     Active Substance: DASATINIB
     Dosage: UNK
  3. IMATINIB [Suspect]
     Active Substance: IMATINIB
     Indication: Chronic myeloid leukaemia
     Dosage: UNK
     Dates: start: 2017, end: 2018
  4. NILOTINIB [Suspect]
     Active Substance: NILOTINIB
     Indication: Chronic myeloid leukaemia
     Dosage: UNK
  5. ASCIMINIB [Suspect]
     Active Substance: ASCIMINIB
     Indication: Chronic myeloid leukaemia

REACTIONS (8)
  - Pulmonary hypertension [Recovering/Resolving]
  - Tachycardia [Recovering/Resolving]
  - Chest pain [Recovering/Resolving]
  - Exercise tolerance decreased [Recovering/Resolving]
  - Loss of therapeutic response [Unknown]
  - Rash [Unknown]
  - Drug intolerance [Unknown]
  - Right ventricular enlargement [Unknown]

NARRATIVE: CASE EVENT DATE: 20240901
